FAERS Safety Report 4982417-X (Version None)
Quarter: 2006Q2

REPORT INFORMATION
  Report Type: 
  Country: None (occurrence: None)
  Receive Date: 20060419
  Receipt Date: 20060406
  Transmission Date: 20061013
  Serious: Yes (Hospitalization)
  Sender: FDA-Public Use
  Company Number: 163-21880-06040368

PATIENT
  Age: 91 Year
  Sex: Female

DRUGS (9)
  1. REVLIMID [Suspect]
     Indication: MYELODYSPLASTIC SYNDROME
     Dosage: 5 MG, DAILY, ORAL
     Route: 048
     Dates: start: 20060323
  2. SYNTHROID [Concomitant]
  3. PREDNISONE TAB [Concomitant]
  4. ENALAPRIL MALEATE [Concomitant]
  5. PRILOSEC [Concomitant]
  6. FOLTX (TRIOBE) (TABLETS) [Concomitant]
  7. FUROSEMIDE [Concomitant]
  8. ARANESP [Concomitant]
  9. FOSAMAX [Concomitant]

REACTIONS (3)
  - HAEMOGLOBIN DECREASED [None]
  - PLATELET COUNT DECREASED [None]
  - WHITE BLOOD CELL COUNT DECREASED [None]
